FAERS Safety Report 17630760 (Version 1)
Quarter: 2020Q2

REPORT INFORMATION
  Report Type: Spontaneous
  Country: GB (occurrence: GB)
  Receive Date: 20200406
  Receipt Date: 20200406
  Transmission Date: 20200713
  Serious: Yes (Other)
  Sender: FDA-Public Use
  Company Number: GB-TEVA-2020-GB-1218304

PATIENT
  Age: 71 Year
  Sex: Female
  Weight: 101.6 kg

DRUGS (4)
  1. FLUOXETINE [Concomitant]
     Active Substance: FLUOXETINE HYDROCHLORIDE
  2. ATORVASTATIN [Concomitant]
     Active Substance: ATORVASTATIN
  3. QUETIAPINE. [Suspect]
     Active Substance: QUETIAPINE
     Dosage: 300 MG
     Route: 048
     Dates: start: 20140301
  4. METFORMIN [Interacting]
     Active Substance: METFORMIN HYDROCHLORIDE
     Indication: DIABETES MELLITUS
     Dosage: 500 MG
     Route: 048
     Dates: start: 20191101, end: 20200303

REACTIONS (9)
  - Drug interaction [Unknown]
  - Memory impairment [Unknown]
  - Food craving [Unknown]
  - Disturbance in attention [Unknown]
  - Blood glucose increased [Recovered/Resolved with Sequelae]
  - Appetite disorder [Unknown]
  - Fatigue [Unknown]
  - Headache [Recovered/Resolved with Sequelae]
  - Blood glucose fluctuation [Unknown]

NARRATIVE: CASE EVENT DATE: 20200101
